FAERS Safety Report 14974957 (Version 3)
Quarter: 2018Q3

REPORT INFORMATION
  Report Type: Spontaneous
  Country: US (occurrence: US)
  Receive Date: 20180605
  Receipt Date: 20180710
  Transmission Date: 20181010
  Serious: Yes (Other)
  Sender: FDA-Public Use
  Company Number: US-JNJFOC-20180536245

PATIENT
  Age: 50 Year
  Sex: Female
  Weight: 92.53 kg

DRUGS (2)
  1. STELARA [Suspect]
     Active Substance: USTEKINUMAB
     Indication: CROHN^S DISEASE
     Route: 058
     Dates: start: 201801, end: 201801
  2. STELARA [Suspect]
     Active Substance: USTEKINUMAB
     Indication: CROHN^S DISEASE
     Route: 058
     Dates: start: 201801

REACTIONS (4)
  - Drug dose omission [Unknown]
  - Cholecystectomy [Unknown]
  - Malaise [Unknown]
  - Syringe issue [Unknown]

NARRATIVE: CASE EVENT DATE: 201802
